FAERS Safety Report 5666850-9 (Version None)
Quarter: 2008Q1

REPORT INFORMATION
  Report Type: 
  Country: None (occurrence: None)
  Receive Date: 20080315
  Receipt Date: 20080103
  Transmission Date: 20080703
  Serious: No
  Sender: FDA-Public Use
  Company Number: US-ABBOTT-08P-163-0432342-00

PATIENT
  Sex: Male
  Weight: 83.082 kg

DRUGS (4)
  1. HUMIRA [Suspect]
     Indication: RHEUMATOID ARTHRITIS
     Route: 058
     Dates: start: 20060101, end: 20070102
  2. HUMIRA [Suspect]
     Indication: ANKYLOSING SPONDYLITIS
     Route: 058
     Dates: start: 20070117, end: 20071220
  3. HUMIRA [Suspect]
     Route: 058
     Dates: start: 20080102
  4. SALBUTAMOL SULFATE [Concomitant]
     Indication: ASTHMA
     Route: 055

REACTIONS (4)
  - COUGH [None]
  - NASOPHARYNGITIS [None]
  - PNEUMONIA [None]
  - RESPIRATORY TRACT CONGESTION [None]
